FAERS Safety Report 23494706 (Version 2)
Quarter: 2024Q1

REPORT INFORMATION
  Report Type: Report from Study
  Country: BR (occurrence: BR)
  Receive Date: 20240207
  Receipt Date: 20240312
  Transmission Date: 20240410
  Serious: Yes (Other)
  Sender: FDA-Public Use
  Company Number: BR-AMGEN-BRASL2024018054

PATIENT
  Age: 75 Year
  Sex: Male

DRUGS (1)
  1. VECTIBIX [Suspect]
     Active Substance: PANITUMUMAB
     Indication: Product used for unknown indication
     Dosage: UNK
     Route: 065
     Dates: start: 20231018

REACTIONS (5)
  - Rectal haemorrhage [Recovering/Resolving]
  - Cataract [Unknown]
  - Skin lesion [Recovering/Resolving]
  - Acne [Recovering/Resolving]
  - Anal inflammation [Recovering/Resolving]
